FAERS Safety Report 19120068 (Version 4)
Quarter: 2021Q3

REPORT INFORMATION
  Report Type: Other
  Country: US (occurrence: US)
  Receive Date: 20210412
  Receipt Date: 20210906
  Transmission Date: 20211014
  Serious: Yes (Other)
  Sender: FDA-Public Use
  Company Number: US-INTERCEPT-PM2021000616

PATIENT
  Age: 52 Year
  Sex: Female

DRUGS (13)
  1. VOLTAREN [Concomitant]
     Active Substance: DICLOFENAC SODIUM
     Indication: OSTEOARTHRITIS
     Dosage: UNK, QID
     Route: 061
     Dates: start: 20201209
  2. LASIX [Concomitant]
     Active Substance: FUROSEMIDE
     Indication: OEDEMA
     Dosage: 20 MILLIGRAM, QD
     Route: 048
     Dates: start: 20201209
  3. IMITREX [Concomitant]
     Active Substance: SUMATRIPTAN SUCCINATE
     Indication: MIGRAINE
     Dosage: 100 MILLIGRAM
     Dates: start: 20201209
  4. ACTIGALL [Concomitant]
     Active Substance: URSODIOL
     Dosage: 500 MILLIGRAM, BID
     Dates: start: 20160814
  5. FLONASE [Concomitant]
     Active Substance: FLUTICASONE PROPIONATE
     Dosage: 2 SPRAYS BY EACH NARE ROUTE, QD
     Route: 045
     Dates: start: 20181028
  6. SYNTHROID [Concomitant]
     Active Substance: LEVOTHYROXINE SODIUM
     Indication: HYPOTHYROIDISM
     Dosage: 75 MICROGRAM, QD
     Route: 048
     Dates: start: 20201209
  7. GLUCOPHAGE XR [Concomitant]
     Active Substance: METFORMIN HYDROCHLORIDE
     Dosage: 500 MILLIGRAM, QD
     Route: 048
     Dates: start: 20210212
  8. PRESERVISION AREDS 2 [Concomitant]
     Active Substance: MINERALS\VITAMINS
     Dosage: UNK
     Route: 048
  9. PRILOSEC [Concomitant]
     Active Substance: OMEPRAZOLE MAGNESIUM
     Indication: DYSPEPSIA
     Dosage: 40 MILLIGRAM, QD
     Route: 048
     Dates: start: 20201209
  10. OCALIVA [Suspect]
     Active Substance: OBETICHOLIC ACID
     Indication: PRIMARY BILIARY CHOLANGITIS
     Dosage: 5 MILLIGRAM, QD
     Route: 048
     Dates: start: 20191212, end: 20200414
  11. ACTIGALL [Concomitant]
     Active Substance: URSODIOL
     Dosage: 500 MILLIGRAM, BID
     Route: 048
     Dates: start: 20200616
  12. OSCAL 250+D [Concomitant]
     Dosage: 125 MILLIGRAM, QD
     Route: 048
  13. COZAAR [Concomitant]
     Active Substance: LOSARTAN POTASSIUM
     Dosage: 50 MILLIGRAM, QD
     Route: 048
     Dates: start: 20210302

REACTIONS (15)
  - Oedema [Unknown]
  - Blood urea increased [Unknown]
  - Osteoarthritis [Unknown]
  - Hepatic steatosis [Not Recovered/Not Resolved]
  - Migraine [Unknown]
  - Prothrombin time shortened [Unknown]
  - Fluid retention [Not Recovered/Not Resolved]
  - Blood urea nitrogen/creatinine ratio increased [Unknown]
  - Dyspepsia [Unknown]
  - Peripheral swelling [Not Recovered/Not Resolved]
  - Nephrolithiasis [Recovered/Resolved]
  - Glucose tolerance impaired [Not Recovered/Not Resolved]
  - Obesity [Not Recovered/Not Resolved]
  - Aspartate aminotransferase decreased [Unknown]
  - Glomerular filtration rate decreased [Recovered/Resolved]

NARRATIVE: CASE EVENT DATE: 20200115
